FAERS Safety Report 8073117-0 (Version None)
Quarter: 2012Q1

REPORT INFORMATION
  Report Type: 
  Country: None (occurrence: None)
  Receive Date: 20120126
  Receipt Date: 20120111
  Transmission Date: 20120608
  Serious: Yes (Other)
  Sender: FDA-Public Use
  Company Number: CA-JNJFOC-20120110819

PATIENT
  Sex: Female
  Weight: 38.56 kg

DRUGS (2)
  1. REMICADE [Suspect]
     Dosage: WEEK 0
     Route: 042
  2. REMICADE [Suspect]
     Indication: COLITIS ULCERATIVE
     Dosage: WEEK 2
     Route: 042
     Dates: start: 20120111

REACTIONS (1)
  - TUBERCULOSIS [None]
